FAERS Safety Report 15728346 (Version 9)
Quarter: 2020Q2

REPORT INFORMATION
  Report Type: Report from Study
  Country: CA (occurrence: CA)
  Receive Date: 20181217
  Receipt Date: 20200523
  Transmission Date: 20200713
  Serious: Yes (Other)
  Sender: FDA-Public Use
  Company Number: CA-ROCHE-2226803

PATIENT
  Age: 57 Year
  Sex: Male

DRUGS (34)
  1. DOMPERIDONE [Concomitant]
     Active Substance: DOMPERIDONE
     Route: 065
  2. MOTILIUM [Concomitant]
     Active Substance: DOMPERIDONE
     Route: 048
  3. SULFATRIM [Concomitant]
     Active Substance: SULFAMETHOXAZOLE\TRIMETHOPRIM
  4. RITUXAN [Suspect]
     Active Substance: RITUXIMAB
     Indication: INTERSTITIAL LUNG DISEASE
     Route: 042
     Dates: start: 201805
  5. DIFLUCAN [Concomitant]
     Active Substance: FLUCONAZOLE
     Route: 065
  6. CELLCEPT [Suspect]
     Active Substance: MYCOPHENOLATE MOFETIL\MYCOPHENOLATE MOFETIL HYDROCHLORIDE
     Indication: SCLERODERMA
     Route: 065
     Dates: start: 201503, end: 201805
  7. DIPHENHYDRAMINE HCL [Concomitant]
     Active Substance: DIPHENHYDRAMINE HYDROCHLORIDE
     Indication: PREMEDICATION
     Route: 048
     Dates: start: 20180604
  8. ACETAMINOPHEN. [Concomitant]
     Active Substance: ACETAMINOPHEN
     Indication: PREMEDICATION
     Route: 048
     Dates: start: 20180604
  9. ASPIRIN [ACETYLSALICYLIC ACID] [Concomitant]
     Active Substance: ASPIRIN
     Route: 065
  10. SEPTRA [Concomitant]
     Active Substance: SULFAMETHOXAZOLE\TRIMETHOPRIM
     Dosage: Q. MONDAY, WEDNESDAY, FRIDAY
     Route: 065
  11. RITUXAN [Suspect]
     Active Substance: RITUXIMAB
     Indication: SCLERODERMA
     Dosage: DAY 1, 15
     Route: 042
     Dates: start: 20180604
  12. ACETAMINOPHEN. [Concomitant]
     Active Substance: ACETAMINOPHEN
     Route: 048
  13. DEXILANT [Concomitant]
     Active Substance: DEXLANSOPRAZOLE
     Route: 065
  14. MAXERAN [Concomitant]
     Active Substance: METOCLOPRAMIDE HYDROCHLORIDE
     Route: 065
  15. SUCRALFATE. [Concomitant]
     Active Substance: SUCRALFATE
     Route: 065
  16. WARFARIN [Concomitant]
     Active Substance: WARFARIN
  17. CELLCEPT [Suspect]
     Active Substance: MYCOPHENOLATE MOFETIL\MYCOPHENOLATE MOFETIL HYDROCHLORIDE
     Indication: INTERSTITIAL LUNG DISEASE
     Dosage: RESTARTED JANUARY 2019 AS BACKGROUND THERAPY
     Route: 048
     Dates: start: 201901
  18. CELLCEPT [Suspect]
     Active Substance: MYCOPHENOLATE MOFETIL\MYCOPHENOLATE MOFETIL HYDROCHLORIDE
     Indication: INTERSTITIAL LUNG DISEASE
     Route: 048
  19. PREDNISONE. [Concomitant]
     Active Substance: PREDNISONE
     Route: 065
     Dates: start: 201201
  20. NASONEX [Concomitant]
     Active Substance: MOMETASONE FUROATE
     Dosage: 2 SPRAYS INTO EACH NOSTRIL B.I.D. P.R.N.
     Route: 065
  21. WARFARIN [Concomitant]
     Active Substance: WARFARIN
  22. ADALAT CC [Concomitant]
     Active Substance: NIFEDIPINE
     Route: 048
  23. TRENTAL [Concomitant]
     Active Substance: PENTOXIFYLLINE
     Route: 048
  24. ACTONEL [Concomitant]
     Active Substance: RISEDRONATE SODIUM
     Route: 048
  25. NIFEDIPINE. [Concomitant]
     Active Substance: NIFEDIPINE
     Dosage: XL
     Route: 065
  26. RITUXAN [Suspect]
     Active Substance: RITUXIMAB
     Indication: INTERSTITIAL LUNG DISEASE
  27. CYCLOPHOSPHAMIDE. [Concomitant]
     Active Substance: CYCLOPHOSPHAMIDE
     Route: 048
     Dates: start: 201201, end: 201206
  28. CIALIS [Concomitant]
     Active Substance: TADALAFIL
     Indication: RAYNAUD^S PHENOMENON
  29. SUCRALFATE. [Concomitant]
     Active Substance: SUCRALFATE
     Dosage: AS REQUIRED
     Route: 065
  30. RISEDRONATE [Concomitant]
     Active Substance: RISEDRONATE SODIUM
     Dosage: EVERY MONDAY, WEDNESDAY , FRIDAY
     Route: 065
  31. PENTOXIFYLLINE. [Concomitant]
     Active Substance: PENTOXIFYLLINE
     Route: 065
  32. PROZAC [Concomitant]
     Active Substance: FLUOXETINE HYDROCHLORIDE
     Dosage: EVERY OTHER DAY
     Route: 065
  33. NIFEDIPINE XL [Concomitant]
     Active Substance: NIFEDIPINE
     Route: 065
  34. METHYLPREDNISOLONE. [Concomitant]
     Active Substance: METHYLPREDNISOLONE
     Indication: PREMEDICATION
     Route: 042
     Dates: start: 20180604

REACTIONS (34)
  - Pulmonary function test decreased [Unknown]
  - Pneumonia [Unknown]
  - Gastrooesophageal reflux disease [Unknown]
  - Diastolic dysfunction [Unknown]
  - Sputum discoloured [Unknown]
  - Rales [Unknown]
  - Skin discolouration [Unknown]
  - Oesophageal ulcer [Unknown]
  - Ill-defined disorder [Unknown]
  - Vomiting [Recovering/Resolving]
  - Localised infection [Not Recovered/Not Resolved]
  - Musculoskeletal chest pain [Unknown]
  - Osteoporosis [Unknown]
  - Crepitations [Unknown]
  - Telangiectasia [Unknown]
  - Raynaud^s phenomenon [Unknown]
  - Dyspnoea [Unknown]
  - Oesophageal dilatation [Unknown]
  - Treatment failure [Unknown]
  - Bronchiectasis [Unknown]
  - Skin tightness [Recovering/Resolving]
  - Pneumonitis [Not Recovered/Not Resolved]
  - Skin ulcer [Not Recovered/Not Resolved]
  - Haematuria [Unknown]
  - Oral candidiasis [Unknown]
  - Cough [Not Recovered/Not Resolved]
  - Oxygen saturation decreased [Unknown]
  - Epistaxis [Unknown]
  - Blood pressure systolic increased [Unknown]
  - Pleuritic pain [Recovering/Resolving]
  - Right ventricular enlargement [Unknown]
  - Upper-airway cough syndrome [Unknown]
  - Therapeutic response shortened [Unknown]
  - Gastrointestinal disorder [Recovering/Resolving]

NARRATIVE: CASE EVENT DATE: 201811
